FAERS Safety Report 18768211 (Version 2)
Quarter: 2021Q1

REPORT INFORMATION
  Report Type: Spontaneous
  Country: JP (occurrence: JP)
  Receive Date: 20210121
  Receipt Date: 20210309
  Transmission Date: 20210419
  Serious: Yes (Disabling, Other)
  Sender: FDA-Public Use
  Company Number: JP-REGENERON PHARMACEUTICALS, INC.-2021-14280

PATIENT

DRUGS (3)
  1. CRAVIT [Concomitant]
     Active Substance: LEVOFLOXACIN
     Indication: INTRAOCULAR PRESSURE DECREASED
     Dosage: QID
     Route: 047
     Dates: start: 20190113, end: 20190118
  2. EYLEA [Suspect]
     Active Substance: AFLIBERCEPT
     Indication: AGE-RELATED MACULAR DEGENERATION
     Dosage: DAILY DOSE 0.05 ML
     Route: 031
     Dates: start: 20190116
  3. EYLEA [Suspect]
     Active Substance: AFLIBERCEPT
     Indication: POLYPOIDAL CHOROIDAL VASCULOPATHY
     Dosage: DAILY DOSE 0.05 ML
     Route: 031
     Dates: start: 20170510

REACTIONS (3)
  - Retinal artery occlusion [Unknown]
  - Visual acuity reduced [Recovered/Resolved]
  - Injection site pain [Unknown]

NARRATIVE: CASE EVENT DATE: 2019
